FAERS Safety Report 7986585-7 (Version None)
Quarter: 2011Q4

REPORT INFORMATION
  Report Type: 
  Country: None (occurrence: None)
  Receive Date: 20111216
  Receipt Date: 20110920
  Transmission Date: 20120403
  Serious: No
  Sender: FDA-Public Use
  Company Number: US-BRISTOL-MYERS SQUIBB COMPANY-15935760

PATIENT
  Age: 51 Year
  Sex: Female

DRUGS (4)
  1. ABILIFY [Suspect]
     Indication: MAJOR DEPRESSION
     Dates: start: 20110708, end: 20110715
  2. CYMBALTA [Concomitant]
  3. KLONOPIN [Concomitant]
  4. SINGULAIR [Concomitant]

REACTIONS (3)
  - EXPIRED DRUG ADMINISTERED [None]
  - VOMITING [None]
  - ABDOMINAL DISCOMFORT [None]
